FAERS Safety Report 17835515 (Version 2)
Quarter: 2020Q2

REPORT INFORMATION
  Report Type: Report from Study
  Country: TR (occurrence: TR)
  Receive Date: 20200528
  Receipt Date: 20200624
  Transmission Date: 20200714
  Serious: Yes (Other)
  Sender: FDA-Public Use
  Company Number: TR-PFIZER INC-2020206318

PATIENT

DRUGS (8)
  1. DEPO-MEDROL [Suspect]
     Active Substance: METHYLPREDNISOLONE ACETATE
     Indication: RADICULAR PAIN
  2. DEKORT [Suspect]
     Active Substance: DEXAMETHASONE
     Indication: RADICULAR PAIN
  3. CITANEST [PRILOCAINE HYDROCHLORIDE] [Suspect]
     Active Substance: PRILOCAINE HYDROCHLORIDE
     Indication: BACK PAIN
     Dosage: 7 ML (20 MG/ML; INJECTION MATERIAL VOLUME WAS 20 ML)
     Route: 008
  4. DEPO-MEDROL [Suspect]
     Active Substance: METHYLPREDNISOLONE ACETATE
     Indication: BACK PAIN
     Dosage: 40 MG (INJECTION MATERIAL VOLUME WAS 20 ML)
     Route: 008
  5. SODIUM CHLORIDE. [Suspect]
     Active Substance: SODIUM CHLORIDE
     Indication: BACK PAIN
     Dosage: 10 ML (INJECTION MATERIAL VOLUME WAS 20 ML)
  6. CITANEST [PRILOCAINE HYDROCHLORIDE] [Suspect]
     Active Substance: PRILOCAINE HYDROCHLORIDE
     Indication: RADICULAR PAIN
  7. SODIUM CHLORIDE. [Suspect]
     Active Substance: SODIUM CHLORIDE
     Indication: RADICULAR PAIN
  8. DEKORT [Suspect]
     Active Substance: DEXAMETHASONE
     Indication: BACK PAIN
     Dosage: UNK (8 MG/2 ML; INJECTION MATERIAL VOLUME WAS 20 ML))
     Route: 008

REACTIONS (1)
  - Urinary retention [Recovered/Resolved]
